FAERS Safety Report 14152111 (Version 4)
Quarter: 2018Q4

REPORT INFORMATION
  Report Type: Spontaneous
  Country: US (occurrence: US)
  Receive Date: 20171102
  Receipt Date: 20181114
  Transmission Date: 20190204
  Serious: No
  Sender: FDA-Public Use
  Company Number: US-PFIZER INC-2017472977

PATIENT
  Age: 48 Year
  Sex: Female
  Weight: 102 kg

DRUGS (3)
  1. PARAPLATIN [Concomitant]
     Active Substance: CARBOPLATIN
     Indication: CHEMOTHERAPY
     Dosage: UNK
  2. DOCETAXEL. [Suspect]
     Active Substance: DOCETAXEL
     Indication: BREAST CANCER METASTATIC
     Dosage: 232 MG, CYCLIC (06 CYCLES), EVERY THREE WEEKS
     Dates: start: 20120626, end: 20121009
  3. HERCEPTIN [Concomitant]
     Active Substance: TRASTUZUMAB
     Dosage: UNK

REACTIONS (4)
  - Hair colour changes [Recovered/Resolved]
  - Alopecia [Recovered/Resolved]
  - Hair texture abnormal [Recovered/Resolved]
  - Hair disorder [Recovered/Resolved]

NARRATIVE: CASE EVENT DATE: 201304
